FAERS Safety Report 9867383 (Version 2)
Quarter: 2014Q1

REPORT INFORMATION
  Report Type: Spontaneous
  Country: US (occurrence: None)
  Receive Date: 20140131
  Receipt Date: 20140212
  Transmission Date: 20141002
  Serious: Yes (Death, Hospitalization)
  Sender: FDA-Public Use
  Company Number: UTC-043833

PATIENT
  Age: 42 Year
  Sex: Female
  Weight: 63.63 kg

DRUGS (2)
  1. REMODULIN [Suspect]
     Indication: COR PULMONALE CHRONIC
     Dosage: 48.96 UG/KG (0.034 UG/KG, 1 IN 1 MIN), SUBCUTANEOUS
     Route: 058
     Dates: start: 20130615
  2. ADCIRCA (TADALAFIL) (UNKNOWN) [Concomitant]

REACTIONS (3)
  - Death [None]
  - Septic shock [None]
  - Cardiac arrest [None]
